FAERS Safety Report 18129167 (Version 2)
Quarter: 2020Q3

REPORT INFORMATION
  Report Type: Spontaneous
  Country: TW (occurrence: TW)
  Receive Date: 20200810
  Receipt Date: 20200917
  Transmission Date: 20201103
  Serious: Yes (Death, Other)
  Sender: FDA-Public Use
  Company Number: TW-B.I. PHARMACEUTICALS,INC./RIDGEFIELD-2020-BI-040450

PATIENT
  Age: 62 Year
  Sex: Male

DRUGS (10)
  1. INDERAL [Concomitant]
     Active Substance: PROPRANOLOL HYDROCHLORIDE
     Dosage: USE FOR SEVERAL YEARS
  2. AVODART [Concomitant]
     Active Substance: DUTASTERIDE
     Dosage: USE FOR SEVERAL YEARS
  3. URECHOLINE [Concomitant]
     Active Substance: BETHANECHOL CHLORIDE
     Dosage: USE FOR SEVERAL YEARS
  4. ROHYPNOL [Concomitant]
     Active Substance: FLUNITRAZEPAM
     Dosage: USE FOR SEVERAL YEARS
  5. LEXOTAN [Concomitant]
     Active Substance: BROMAZEPAM
     Dosage: USE FOR SEVERAL YEARS
  6. ZYPREXA ZYDIS [Concomitant]
     Active Substance: OLANZAPINE
  7. SENOKOT [Concomitant]
     Active Substance: SENNOSIDES
     Dosage: USE FOR SEVERAL YEARS
  8. CYMBALTA [Concomitant]
     Active Substance: DULOXETINE HYDROCHLORIDE
     Dosage: USE FOR SEVERAL YEARS
  9. OFEV [Suspect]
     Active Substance: NINTEDANIB
     Indication: PRODUCT USED FOR UNKNOWN INDICATION
  10. DOXABEN XL [Concomitant]
     Active Substance: DOXAZOSIN MESYLATE
     Dosage: USE FOR SEVERAL YEARS

REACTIONS (2)
  - Diarrhoea [Unknown]
  - Myocardial infarction [Fatal]
